FAERS Safety Report 17884804 (Version 1)
Quarter: 2020Q2

REPORT INFORMATION
  Report Type: Spontaneous
  Country: US (occurrence: US)
  Receive Date: 20200611
  Receipt Date: 20200611
  Transmission Date: 20200714
  Serious: Yes (Hospitalization, Other)
  Sender: FDA-Public Use
  Company Number: None

PATIENT
  Age: 81 Year
  Sex: Female

DRUGS (7)
  1. OMEPRAZOLE 40MG [Concomitant]
     Active Substance: OMEPRAZOLE
  2. CALCIUM [Concomitant]
     Active Substance: CALCIUM
  3. CENTRUM SILVER [Concomitant]
     Active Substance: MINERALS\VITAMINS
  4. OLMESARTAN [Concomitant]
     Active Substance: OLMESARTAN
  5. XARELTO [Suspect]
     Active Substance: RIVAROXABAN
     Indication: THROMBOSIS
  6. MEDOCOMIL 40MG [Concomitant]
  7. VITAMIN C, D [Concomitant]

REACTIONS (4)
  - Hiatus hernia [None]
  - Gastrooesophageal reflux disease [None]
  - Chest pain [None]
  - Irritable bowel syndrome [None]

NARRATIVE: CASE EVENT DATE: 20200107
